FAERS Safety Report 6409253-1 (Version None)
Quarter: 2009Q4

REPORT INFORMATION
  Report Type: 
  Country: None (occurrence: None)
  Receive Date: 20091019
  Receipt Date: 20091019
  Transmission Date: 20100525
  Serious: No
  Sender: FDA-Public Use
  Company Number: None

PATIENT
  Age: 43 Year
  Sex: Female
  Weight: 47.6277 kg

DRUGS (1)
  1. VERAMYST [Suspect]
     Indication: MULTIPLE ALLERGIES
     Dosage: A SPRAY PER NOSTRIL EVERY OTHER DAY NASAL
     Route: 045
     Dates: start: 20070306, end: 20091015

REACTIONS (1)
  - CATARACT [None]
